FAERS Safety Report 13814686 (Version 1)
Quarter: 2017Q3

REPORT INFORMATION
  Report Type: Spontaneous
  Country: US (occurrence: US)
  Receive Date: 20170729
  Receipt Date: 20170729
  Transmission Date: 20171127
  Serious: Yes (Life-Threatening, Disabling, Other)
  Sender: FDA-Public Use
  Company Number: None

PATIENT
  Age: 68 Year
  Sex: Female
  Weight: 79.65 kg

DRUGS (6)
  1. ROPINIROLE. [Concomitant]
     Active Substance: ROPINIROLE
  2. LEVOTHYROXINE. [Concomitant]
     Active Substance: LEVOTHYROXINE
  3. CLOIDINE [Concomitant]
  4. CLONAZEPAM. [Suspect]
     Active Substance: CLONAZEPAM
     Indication: INSOMNIA
     Route: 048
  5. LISINOPRIL. [Concomitant]
     Active Substance: LISINOPRIL
  6. CLONAZEPAM. [Concomitant]
     Active Substance: CLONAZEPAM

REACTIONS (16)
  - Agoraphobia [None]
  - Mental disorder [None]
  - Pain [None]
  - Abdominal pain upper [None]
  - Akathisia [None]
  - Diarrhoea [None]
  - Constipation [None]
  - Bedridden [None]
  - Fall [None]
  - Drug withdrawal syndrome [None]
  - Fatigue [None]
  - Nausea [None]
  - Asthenia [None]
  - Dysgeusia [None]
  - Neuralgia [None]
  - Bone pain [None]

NARRATIVE: CASE EVENT DATE: 20170301
